FAERS Safety Report 5202396-X (Version None)
Quarter: 2006Q4

REPORT INFORMATION
  Report Type: 
  Country: None (occurrence: None)
  Receive Date: 20061012
  Receipt Date: 20060804
  Transmission Date: 20070319
  Serious: No
  Sender: FDA-Public Use
  Company Number: 2006S1000152

PATIENT
  Age: 49 Year
  Sex: Female
  Weight: 97 kg

DRUGS (9)
  1. CUBICIN [Suspect]
     Indication: WOUND INFECTION STAPHYLOCOCCAL
     Dosage: 400 MG;Q24H;IV
     Route: 042
     Dates: start: 20060730, end: 20060816
  2. ONDANSETRON [Concomitant]
  3. NYSTATIN [Concomitant]
  4. EFFEXOR [Concomitant]
  5. TRAZODONE HCL [Concomitant]
  6. ATENOLOL [Concomitant]
  7. LISINOPRIL [Concomitant]
  8. CELEBREX [Concomitant]
  9. PRILOSEC [Concomitant]

REACTIONS (2)
  - DYSGEUSIA [None]
  - SKIN ODOUR ABNORMAL [None]
